FAERS Safety Report 7067852-0 (Version None)
Quarter: 2010Q4

REPORT INFORMATION
  Report Type: 
  Country: None (occurrence: None)
  Receive Date: 20101028
  Receipt Date: 20101025
  Transmission Date: 20110411
  Serious: Yes (Other)
  Sender: FDA-Public Use
  Company Number: CH-PFIZER INC-2010129801

PATIENT
  Age: 74 Year
  Sex: Female

DRUGS (1)
  1. DIFLUCAN [Suspect]
     Indication: ORAL FUNGAL INFECTION
     Dosage: 150 MG, UNK
     Dates: start: 20100729

REACTIONS (6)
  - AGEUSIA [None]
  - CHAPPED LIPS [None]
  - LIP SWELLING [None]
  - PAIN [None]
  - SWELLING FACE [None]
  - TONGUE INJURY [None]
